FAERS Safety Report 9441747 (Version 2)
Quarter: 2013Q4

REPORT INFORMATION
  Report Type: Report from Study
  Country: JP (occurrence: JP)
  Receive Date: 20130806
  Receipt Date: 20131121
  Transmission Date: 20140711
  Serious: Yes (Hospitalization)
  Sender: FDA-Public Use
  Company Number: JP-009507513-1308JPN001278

PATIENT
  Age: 61 Year
  Sex: Female

DRUGS (13)
  1. ZOLINZA CAPSULES 100MG [Suspect]
     Indication: MYCOSIS FUNGOIDES
     Dosage: 400 MG, QD
     Route: 048
     Dates: start: 20120909, end: 20120920
  2. ZOLINZA CAPSULES 100MG [Suspect]
     Dosage: 300 MG, QD
     Route: 048
     Dates: start: 20120926, end: 20121009
  3. ZOLINZA CAPSULES 100MG [Suspect]
     Dosage: 300 MG, QD, 5 DAYS DOSAGE, 2 DAYS INTERRUPTION
     Route: 048
     Dates: start: 20121015, end: 201211
  4. ZOLINZA CAPSULES 100MG [Suspect]
     Dosage: 300 MG, QD
     Route: 048
     Dates: start: 20121203
  5. ENDOXAN [Suspect]
     Indication: MYCOSIS FUNGOIDES
     Dosage: 1056 MG, QD
     Route: 051
     Dates: start: 20120820
  6. ADRIACIN [Suspect]
     Indication: MYCOSIS FUNGOIDES
     Dosage: 70 MG, QD
     Route: 051
     Dates: start: 20120820
  7. ONCOVIN [Suspect]
     Indication: MYCOSIS FUNGOIDES
     Dosage: 1.97 MG, QD
     Route: 051
     Dates: start: 20120820
  8. PREDONINE [Suspect]
     Indication: MYCOSIS FUNGOIDES
     Dosage: 60 MG, QD
     Route: 051
     Dates: start: 20120820
  9. PREDONINE [Suspect]
     Indication: MYCOSIS FUNGOIDES
     Dosage: 60 MG, BID
     Route: 048
     Dates: start: 20120821, end: 20120824
  10. NEUFAN [Concomitant]
     Indication: MYCOSIS FUNGOIDES
     Dosage: 100 MG, BID
     Route: 048
     Dates: start: 20120819, end: 20120909
  11. NEUFAN [Concomitant]
     Indication: PROPHYLAXIS
     Dosage: 100 MG, BID
     Route: 048
  12. ALLELOCK [Concomitant]
     Indication: MYCOSIS FUNGOIDES
     Dosage: 5 MG, BID
     Route: 048
     Dates: start: 20120713
  13. DIOVAN [Concomitant]
     Indication: HYPERTENSION
     Dosage: 40 MG, QD
     Route: 048
     Dates: start: 20121009

REACTIONS (3)
  - Thrombophlebitis [Recovered/Resolved]
  - Renal impairment [Recovered/Resolved]
  - Platelet count decreased [Recovered/Resolved]
